FAERS Safety Report 6372063-8 (Version None)
Quarter: 2009Q3

REPORT INFORMATION
  Report Type: 
  Country: None (occurrence: None)
  Receive Date: 20090917
  Receipt Date: 20090910
  Transmission Date: 20100115
  Serious: Yes (Other)
  Sender: FDA-Public Use
  Company Number: 2009SP021831

PATIENT
  Age: 29 Year
  Sex: Female

DRUGS (2)
  1. PREGNYL [Suspect]
     Indication: LUTEAL PHASE DEFICIENCY
     Dosage: 5000, IU, ONCE;
     Dates: start: 20090803, end: 20090803
  2. PREGNYL [Suspect]
     Indication: LUTEAL PHASE DEFICIENCY
     Dosage: 5000, IU, ONCE;
     Dates: start: 20090810, end: 20090810

REACTIONS (4)
  - ABORTION SPONTANEOUS [None]
  - DRUG EXPOSURE DURING PREGNANCY [None]
  - PAIN [None]
  - PREGNANCY [None]
